FAERS Safety Report 7607028-9 (Version None)
Quarter: 2011Q3

REPORT INFORMATION
  Report Type: 
  Country: None (occurrence: None)
  Receive Date: 20110706
  Receipt Date: 20110627
  Transmission Date: 20111222
  Serious: Yes (Other)
  Sender: FDA-Public Use
  Company Number: ACO_25389_2011

PATIENT
  Age: 28 Year
  Sex: Male

DRUGS (2)
  1. AMPYRA [Suspect]
     Indication: GAIT DISTURBANCE
     Dosage: 10MG,Q 12HRS
     Dates: start: 20110107, end: 20110530
  2. BETASERON  /01229701/ (ALBUMIN HUMAN, GLUCOSE, INTERFERON BETA) [Concomitant]

REACTIONS (3)
  - GRAND MAL CONVULSION [None]
  - TONGUE BITING [None]
  - DRUG INEFFECTIVE [None]
